FAERS Safety Report 9054736 (Version 3)
Quarter: 2013Q2

REPORT INFORMATION
  Report Type: Spontaneous
  Country: US (occurrence: US)
  Receive Date: 20130208
  Receipt Date: 20130405
  Transmission Date: 20140414
  Serious: Yes (Other)
  Sender: FDA-Public Use
  Company Number: PHHY2013US011451

PATIENT
  Sex: Female
  Weight: 120.3 kg

DRUGS (35)
  1. GILENYA [Suspect]
     Indication: MULTIPLE SCLEROSIS
     Dosage: 0.5 MG, QD
     Route: 048
     Dates: start: 201104, end: 201211
  2. TYSABRI [Suspect]
     Indication: MULTIPLE SCLEROSIS
     Dosage: UNK UKN, UNK
     Dates: start: 20121127
  3. FEXOFENADINE [Concomitant]
  4. PRO-AIR [Concomitant]
  5. ADVAIR [Concomitant]
  6. FLUTICASONE [Concomitant]
  7. NEXIUM [Concomitant]
  8. LOSARTAN [Concomitant]
  9. POTASSIUM [Concomitant]
  10. TRILIPIX [Concomitant]
  11. NIASPAN [Concomitant]
  12. SIMVASTATIN [Concomitant]
     Dosage: 20 MG, DAILY
     Route: 048
  13. TRAZODONE [Concomitant]
     Indication: SLEEP DISORDER
     Dosage: 100 MG, UNK
     Route: 048
  14. METFORMIN [Concomitant]
  15. LYRICA [Concomitant]
     Indication: NEURALGIA
     Dosage: 200 MG, UNK
     Route: 048
  16. ZOLPIDEM [Concomitant]
     Indication: SLEEP DISORDER
  17. PRIMIDONE [Concomitant]
     Indication: TREMOR
  18. NUVIGIL [Concomitant]
     Indication: ASTHENIA
     Dosage: 150 MG, DAILY
     Route: 048
  19. BACLOFEN [Concomitant]
     Indication: MUSCLE SPASTICITY
     Dosage: 10 MG, QID
     Route: 048
  20. BACLOFEN [Concomitant]
     Indication: MUSCLE SPASMS
  21. PERCOCET [Concomitant]
     Indication: PAIN
     Dosage: UNK
  22. CALCIUM + VITAMIN D [Concomitant]
  23. OMEGA-3 FATTY ACIDS [Concomitant]
  24. BUFFERIN [Concomitant]
  25. MULTI-VIT [Concomitant]
  26. GLUCOSAMINE [Concomitant]
  27. VITAMIN B12 [Concomitant]
  28. SIMETHICONE [Concomitant]
  29. ASPIRIN [Concomitant]
  30. IBUPROFEN [Concomitant]
  31. TYLENOL [Concomitant]
  32. VITAMIN C [Concomitant]
     Dosage: 1000 MG, QD
  33. CELEBREX [Concomitant]
     Dosage: 200 MG, BID
     Route: 048
  34. BUSPAR [Concomitant]
     Dosage: 300 MG, QD
     Route: 048
  35. DIAZEPAM [Concomitant]
     Dosage: 5 MG, BID
     Route: 048

REACTIONS (35)
  - Lumbar spinal stenosis [Unknown]
  - Secondary progressive multiple sclerosis [Unknown]
  - Multiple sclerosis relapse [Unknown]
  - Vision blurred [Unknown]
  - Constipation [Unknown]
  - Incontinence [Unknown]
  - Gait disturbance [Not Recovered/Not Resolved]
  - Muscular weakness [Unknown]
  - Fatigue [Unknown]
  - Cognitive disorder [Unknown]
  - Mood altered [Unknown]
  - Visual acuity reduced [Unknown]
  - Eye movement disorder [Unknown]
  - Depression [Recovering/Resolving]
  - Anxiety [Recovering/Resolving]
  - Balance disorder [Not Recovered/Not Resolved]
  - Sensation of heaviness [Unknown]
  - Pain in extremity [Unknown]
  - Headache [Unknown]
  - Musculoskeletal pain [Unknown]
  - Stress [Unknown]
  - Dysstasia [Unknown]
  - Joint swelling [Unknown]
  - Pain [Unknown]
  - Neck pain [Unknown]
  - Pollakiuria [Unknown]
  - Micturition urgency [Unknown]
  - Defaecation urgency [Unknown]
  - Postoperative wound infection [Unknown]
  - Sinus disorder [Unknown]
  - Fall [Unknown]
  - Nasopharyngitis [Unknown]
  - Rhinorrhoea [Unknown]
  - White blood cell count decreased [Unknown]
  - Alanine aminotransferase increased [Unknown]
